FAERS Safety Report 4633896-9 (Version None)
Quarter: 2005Q1

REPORT INFORMATION
  Report Type: 
  Country: None (occurrence: None)
  Receive Date: 20050325
  Receipt Date: 20041229
  Transmission Date: 20050727
  Serious: No
  Sender: FDA-Public Use
  Company Number: USA041287163

PATIENT
  Age: 64 Year
  Sex: Female

DRUGS (1)
  1. FORTEO [Suspect]
     Indication: OSTEOPOROSIS
     Dates: start: 20031201, end: 20041201

REACTIONS (3)
  - BLOOD CALCIUM INCREASED [None]
  - RIB FRACTURE [None]
  - WHITE BLOOD CELL COUNT INCREASED [None]
